FAERS Safety Report 4676407-4 (Version None)
Quarter: 2005Q2

REPORT INFORMATION
  Report Type: 
  Country: None (occurrence: None)
  Receive Date: 20050527
  Receipt Date: 20050307
  Transmission Date: 20051028
  Serious: No
  Sender: FDA-Public Use
  Company Number: US-GLAXOSMITHKLINE-A0548618A

PATIENT
  Age: 56 Year
  Sex: Male

DRUGS (11)
  1. WELLBUTRIN XL [Suspect]
     Route: 048
  2. SINEMET [Concomitant]
  3. COMTAN [Concomitant]
  4. MIRAPEX [Concomitant]
  5. ZERIT [Concomitant]
  6. VIREAD [Concomitant]
  7. SUSTIVA [Concomitant]
  8. ZOLOFT [Concomitant]
  9. CALCIUM GLUCONATE [Concomitant]
  10. FOSAMAX [Concomitant]
  11. VALIUM [Concomitant]

REACTIONS (1)
  - PARAESTHESIA [None]
